FAERS Safety Report 7931665-5 (Version None)
Quarter: 2011Q4

REPORT INFORMATION
  Report Type: 
  Country: None (occurrence: None)
  Receive Date: 20111121
  Receipt Date: 20111108
  Transmission Date: 20120403
  Serious: Yes (Hospitalization, Other)
  Sender: FDA-Public Use
  Company Number: PHHY2011JP71044

PATIENT
  Sex: Female
  Weight: 52 kg

DRUGS (4)
  1. ALDOMET [Concomitant]
     Route: 048
     Dates: start: 20110516
  2. DIOVAN [Suspect]
     Indication: HYPERTENSION
     Route: 048
     Dates: end: 20110501
  3. TANATRIL [Suspect]
     Indication: HYPERTENSION
     Dosage: 1 DF, DAILY
     Route: 048
     Dates: end: 20110516
  4. ATELEC [Suspect]
     Indication: HYPERTENSION
     Dosage: UNK
     Route: 048
     Dates: end: 20110501

REACTIONS (7)
  - HYPERTENSIVE NEPHROPATHY [None]
  - POLYHYDRAMNIOS [None]
  - THREATENED LABOUR [None]
  - AMNIOTIC FLUID VOLUME DECREASED [None]
  - PRE-ECLAMPSIA [None]
  - OLIGOHYDRAMNIOS [None]
  - MATERNAL EXPOSURE DURING PREGNANCY [None]
